FAERS Safety Report 4429499-1 (Version None)
Quarter: 2004Q3

REPORT INFORMATION
  Report Type: 
  Country: None (occurrence: None)
  Receive Date: 20040818
  Receipt Date: 20040818
  Transmission Date: 20050211
  Serious: Yes (Hospitalization)
  Sender: FDA-Public Use
  Company Number: None

PATIENT
  Age: 78 Year
  Sex: Female
  Weight: 181.3 kg

DRUGS (14)
  1. OMNIPAQUE 140 [Suspect]
     Indication: DIAGNOSTIC PROCEDURE
     Dosage: 125 ML IV OTO
     Route: 042
     Dates: start: 20040412
  2. ASPIRIN [Concomitant]
  3. PLAVIX [Concomitant]
  4. AMARYL [Concomitant]
  5. LOPRESSOR [Concomitant]
  6. ALTACE [Concomitant]
  7. NITRO-DUR [Concomitant]
  8. LASIX [Concomitant]
  9. HEPARIN [Concomitant]
  10. ALDACTONE [Concomitant]
  11. ACETYLCYSTEINE [Concomitant]
  12. DIAZEPAM [Concomitant]
  13. CONCLIDINE [Concomitant]
  14. SLIDING SCALE INSULIN [Concomitant]

REACTIONS (4)
  - HYPOTENSION [None]
  - NEPHROPATHY TOXIC [None]
  - RASH PRURITIC [None]
  - RENAL FAILURE ACUTE [None]
